FAERS Safety Report 8146536-1 (Version None)
Quarter: 2012Q1

REPORT INFORMATION
  Report Type: 
  Country: None (occurrence: None)
  Receive Date: 20120217
  Receipt Date: 20120206
  Transmission Date: 20120608
  Serious: Yes (Death)
  Sender: FDA-Public Use
  Company Number: GB-ROCHE-1037533

PATIENT
  Sex: Female
  Weight: 46 kg

DRUGS (2)
  1. METHOTREXATE [Concomitant]
  2. MABTHERA [Suspect]
     Indication: RHEUMATOID ARTHRITIS
     Dates: start: 20081229

REACTIONS (3)
  - MYELODYSPLASTIC SYNDROME [None]
  - INTESTINAL INFARCTION [None]
  - VENOUS OCCLUSION [None]
